FAERS Safety Report 20013144 (Version 1)
Quarter: 2021Q4

REPORT INFORMATION
  Report Type: Spontaneous
  Country: US (occurrence: US)
  Receive Date: 20211029
  Receipt Date: 20211029
  Transmission Date: 20220303
  Serious: Yes (Life-Threatening)
  Sender: FDA-Public Use
  Company Number: US-ROCHE-2944833

PATIENT
  Age: 53 Year
  Sex: Male
  Weight: 90.3 kg

DRUGS (19)
  1. ACTEMRA [Suspect]
     Active Substance: TOCILIZUMAB
     Indication: COVID-19
     Route: 040
     Dates: start: 20211010, end: 20211010
  2. CARVEDILOL [Concomitant]
     Active Substance: CARVEDILOL
     Dosage: PO/GT BID
     Dates: start: 20211012
  3. FUROSEMIDE [Concomitant]
     Active Substance: FUROSEMIDE
     Route: 042
     Dates: start: 20211009
  4. ENOXAPARIN BIOSIMILAR [Concomitant]
     Dosage: SQ BID
  5. PANTOPRAZOLE [Concomitant]
     Active Substance: PANTOPRAZOLE
     Dosage: Q12
     Route: 042
     Dates: start: 20211009
  6. PIPERACILLIN SODIUM\TAZOBACTAM SODIUM [Concomitant]
     Active Substance: PIPERACILLIN SODIUM\TAZOBACTAM SODIUM
     Dosage: 3.375 GM IV Q8
     Route: 042
  7. VANCOMYCIN [Concomitant]
     Active Substance: VANCOMYCIN
     Route: 042
     Dates: start: 20211009
  8. DEXAMETHASONE [Concomitant]
     Active Substance: DEXAMETHASONE
     Route: 042
     Dates: start: 20211009, end: 20211019
  9. DEXAMETHASONE [Concomitant]
     Active Substance: DEXAMETHASONE
     Route: 042
     Dates: start: 20211009, end: 20211009
  10. DEXAMETHASONE [Concomitant]
     Active Substance: DEXAMETHASONE
     Route: 042
     Dates: start: 20211009
  11. ETOMIDATE [Concomitant]
     Active Substance: ETOMIDATE
     Route: 042
  12. SUCCINYLCHOLINE [Concomitant]
     Active Substance: SUCCINYLCHOLINE
     Route: 042
     Dates: start: 20211009, end: 20211009
  13. INSULIN GLARGINE [Concomitant]
     Active Substance: INSULIN GLARGINE
     Route: 058
     Dates: start: 20211011, end: 20211017
  14. LOPERAMIDE [Concomitant]
     Active Substance: LOPERAMIDE
     Dosage: PO/GT Q4H PRN
     Dates: start: 20211012
  15. FENTANYL [Concomitant]
     Active Substance: FENTANYL
     Dosage: Q4H PRN-
     Route: 042
     Dates: start: 20211019
  16. POTASSIUM CHLORIDE [Concomitant]
     Active Substance: POTASSIUM CHLORIDE
     Dosage: IV/PO -INTERMITTENT DOSES--
  17. ZINC SULFATE [Concomitant]
     Active Substance: ZINC SULFATE
     Dosage: PO/GT TID
     Dates: start: 20211011
  18. ASCORBIC ACID [Concomitant]
     Active Substance: ASCORBIC ACID
     Dosage: PO/GT DAILY
     Dates: start: 20211011
  19. ACETAMINOPHEN [Concomitant]
     Active Substance: ACETAMINOPHEN
     Dosage: PO/GT Q4H PRN
     Dates: start: 20211009

REACTIONS (2)
  - Off label use [Unknown]
  - Abdominal distension [Unknown]

NARRATIVE: CASE EVENT DATE: 20211010
